FAERS Safety Report 22767597 (Version 25)
Quarter: 2024Q2

REPORT INFORMATION
  Report Type: Report from Study
  Country: CO (occurrence: CO)
  Receive Date: 20230731
  Receipt Date: 20240531
  Transmission Date: 20240716
  Serious: Yes (Hospitalization, Other)
  Sender: FDA-Public Use
  Company Number: CO-TAKEDA-2023TUS024890

PATIENT
  Age: 74 Year
  Sex: Female
  Weight: 84 kg

DRUGS (5)
  1. IXAZOMIB [Suspect]
     Active Substance: IXAZOMIB
     Indication: Plasma cell myeloma
     Dosage: 4 MILLIGRAM
     Route: 048
     Dates: start: 20230228
  2. CEPHALEXIN [Suspect]
     Active Substance: CEPHALEXIN
     Indication: Urinary tract infection
     Dosage: UNK
     Route: 065
  3. CEPHALEXIN [Suspect]
     Active Substance: CEPHALEXIN
     Indication: Influenza
  4. LENALIDOMIDE [Suspect]
     Active Substance: LENALIDOMIDE
     Indication: Plasma cell myeloma
     Dosage: 25 MILLIGRAM
     Route: 048
  5. DEXAMETHASONE [Concomitant]
     Active Substance: DEXAMETHASONE
     Dosage: 20 MILLIGRAM
     Route: 042

REACTIONS (50)
  - Renal failure [Unknown]
  - Haemorrhage [Unknown]
  - Syncope [Unknown]
  - Deafness bilateral [Not Recovered/Not Resolved]
  - Cataract [Unknown]
  - Varicose vein [Unknown]
  - Wound [Unknown]
  - Wound complication [Unknown]
  - Discouragement [Unknown]
  - Illness [Unknown]
  - Hypoaesthesia [Recovering/Resolving]
  - Emotional distress [Unknown]
  - Treatment noncompliance [Unknown]
  - Pruritus [Recovering/Resolving]
  - Influenza [Recovering/Resolving]
  - Urinary tract infection [Unknown]
  - Fall [Recovering/Resolving]
  - Inflammation [Recovering/Resolving]
  - Weight increased [Unknown]
  - Vascular injury [Unknown]
  - Hypoacusis [Unknown]
  - Lung disorder [Recovering/Resolving]
  - Depressed mood [Unknown]
  - Visual impairment [Unknown]
  - Hypersensitivity [Recovered/Resolved]
  - Asthenia [Recovering/Resolving]
  - Cough [Recovering/Resolving]
  - Haemoglobin decreased [Unknown]
  - Decreased appetite [Recovering/Resolving]
  - Anxiety [Unknown]
  - Red blood cell count decreased [Unknown]
  - Arthralgia [Unknown]
  - Headache [Unknown]
  - Malaise [Unknown]
  - Chills [Not Recovered/Not Resolved]
  - Tremor [Not Recovered/Not Resolved]
  - Muscular weakness [Unknown]
  - Gait disturbance [Unknown]
  - Dizziness [Unknown]
  - Platelet count decreased [Unknown]
  - Rash [Recovered/Resolved]
  - Nausea [Not Recovered/Not Resolved]
  - Limb injury [Unknown]
  - Skin wound [Unknown]
  - Blood potassium decreased [Unknown]
  - Therapy non-responder [Unknown]
  - Drug ineffective [Unknown]
  - Pain in extremity [Not Recovered/Not Resolved]
  - General physical health deterioration [Unknown]
  - Inappropriate schedule of product administration [Unknown]

NARRATIVE: CASE EVENT DATE: 20230304
